FAERS Safety Report 4414307-5 (Version None)
Quarter: 2004Q2

REPORT INFORMATION
  Report Type: 
  Country: None (occurrence: None)
  Receive Date: 20040630
  Receipt Date: 20040308
  Transmission Date: 20050107
  Serious: No
  Sender: FDA-Public Use
  Company Number: 04P-163-0252746-00

PATIENT
  Age: 54 Year
  Sex: Female
  Weight: 77.1115 kg

DRUGS (12)
  1. HUMIRA [Suspect]
     Indication: RHEUMATOID ARTHRITIS
     Dosage: 40 MG, 1 IN 2 WK, SUBCUTANEOUS
     Route: 058
     Dates: start: 20040202
  2. PHENOBARBITAL SODIUM [Concomitant]
  3. PHENYTOIN SODIUM [Concomitant]
  4. METHOTREXATE [Concomitant]
  5. PREDNISONE TAB [Concomitant]
  6. CELECOXIB [Concomitant]
  7. RISEDRONATE SODIUM [Concomitant]
  8. ASPIRIN [Concomitant]
  9. CALCIUM CARBONATE [Concomitant]
  10. CENTRUM [Concomitant]
  11. TOCOPHEROL CONCENTRATE CAP [Concomitant]
  12. FOLIC ACID [Concomitant]

REACTIONS (1)
  - TOOTH INFECTION [None]
